FAERS Safety Report 7359585-8 (Version None)
Quarter: 2011Q1

REPORT INFORMATION
  Report Type: 
  Country: None (occurrence: None)
  Receive Date: 20110317
  Receipt Date: 20100218
  Transmission Date: 20110831
  Serious: No
  Sender: FDA-Public Use
  Company Number: US-PFIZER INC-2010022534

PATIENT
  Sex: Female

DRUGS (3)
  1. KLONOPIN [Concomitant]
     Dosage: UNK
     Route: 048
  2. AMLODIPINE BESYLATE [Suspect]
     Indication: BLOOD PRESSURE ABNORMAL
     Dosage: 5 MG, 1X/DAY
     Route: 048
  3. LABETALOL [Concomitant]
     Dosage: UNK
     Route: 048

REACTIONS (1)
  - SOMNOLENCE [None]
